FAERS Safety Report 4426305-6 (Version None)
Quarter: 2004Q3

REPORT INFORMATION
  Report Type: 
  Country: None (occurrence: None)
  Receive Date: 20040811
  Receipt Date: 20040802
  Transmission Date: 20050211
  Serious: Yes (Life-Threatening, Hospitalization)
  Sender: FDA-Public Use
  Company Number: A-CH2004-04191

PATIENT
  Age: 58 Year
  Sex: Female
  Weight: 148 kg

DRUGS (10)
  1. TRACLEER [Suspect]
     Indication: PULMONARY HYPERTENSION
     Dosage: 62.5 MG, BID; ORAL (SEE IMAGE)
     Route: 048
     Dates: start: 20030922, end: 20031015
  2. TRACLEER [Suspect]
     Indication: PULMONARY HYPERTENSION
     Dosage: 62.5 MG, BID; ORAL (SEE IMAGE)
     Route: 048
     Dates: start: 20031016, end: 20040105
  3. TRACLEER [Suspect]
     Indication: PULMONARY HYPERTENSION
     Dosage: 62.5 MG, BID; ORAL (SEE IMAGE)
     Route: 048
     Dates: start: 20040106, end: 20040109
  4. TRACLEER [Suspect]
     Indication: PULMONARY HYPERTENSION
     Dosage: 62.5 MG, BID; ORAL (SEE IMAGE)
     Route: 048
     Dates: start: 20040110
  5. OXYGEN [Concomitant]
  6. LASLIX (FUROSEMIDE) [Concomitant]
  7. ALDACTONE [Concomitant]
  8. DILRENE (DILTIAZEM HYDROCHLORIDE) [Concomitant]
  9. PREVISCAN (FLUINDOINE) [Concomitant]
  10. STILNOX (ZOLPIDEM) [Concomitant]

REACTIONS (10)
  - CARDIAC FAILURE [None]
  - DILATATION ATRIAL [None]
  - DILATATION VENTRICULAR [None]
  - DRY MOUTH [None]
  - DYSPNOEA EXACERBATED [None]
  - NIGHTMARE [None]
  - POST PROCEDURAL COMPLICATION [None]
  - PULMONARY ARTERIAL WEDGE PRESSURE INCREASED [None]
  - PULMONARY OEDEMA [None]
  - RESPIRATORY FAILURE [None]
